FAERS Safety Report 11249041 (Version 1)
Quarter: 2015Q3

REPORT INFORMATION
  Report Type: Spontaneous
  Country: US (occurrence: US)
  Receive Date: 20150708
  Receipt Date: 20150708
  Transmission Date: 20151125
  Serious: Yes (Other)
  Sender: FDA-Public Use
  Company Number: US-ELI_LILLY_AND_COMPANY-US200804001135

PATIENT
  Age: 74 Year
  Sex: Female

DRUGS (9)
  1. MEGACE [Concomitant]
     Active Substance: MEGESTROL ACETATE
     Indication: APPETITE DISORDER
  2. ALIMTA [Suspect]
     Active Substance: PEMETREXED DISODIUM
     Dates: start: 20070816, end: 20080327
  3. OXYCODONE [Concomitant]
     Active Substance: OXYCODONE
  4. VITAMIN B12 [Concomitant]
     Active Substance: CYANOCOBALAMIN
  5. ALIMTA [Suspect]
     Active Substance: PEMETREXED DISODIUM
     Indication: MESOTHELIOMA
     Dosage: 660 MG, UNK
     Route: 042
     Dates: start: 20070222, end: 20070611
  6. CARBOPLATIN. [Concomitant]
     Active Substance: CARBOPLATIN
     Indication: MESOTHELIOMA
     Dosage: 500 MG, UNK
     Dates: start: 20070222, end: 20070611
  7. FOLIC ACID. [Concomitant]
     Active Substance: FOLIC ACID
  8. FOSAMAX [Concomitant]
     Active Substance: ALENDRONATE SODIUM
     Indication: BONE DISORDER
  9. CALCIUM [Concomitant]
     Active Substance: CALCIUM
     Indication: SUPPLEMENTATION THERAPY

REACTIONS (1)
  - Malignant neoplasm progression [Unknown]

NARRATIVE: CASE EVENT DATE: 20080402
